FAERS Safety Report 9331024 (Version 3)
Quarter: 2013Q3

REPORT INFORMATION
  Report Type: Spontaneous
  Country: GB (occurrence: GB)
  Receive Date: 20130605
  Receipt Date: 20130719
  Transmission Date: 20140515
  Serious: Yes (Other)
  Sender: FDA-Public Use
  Company Number: GB-COVIDIEN/TYCO HEALTHCARE/MALLINCKRODT-T201302484

PATIENT
  Age: 83 Year
  Sex: Male

DRUGS (2)
  1. OPTIRAY 300 [Suspect]
     Indication: COMPUTERISED TOMOGRAM
     Dosage: 100 ML, SINGLE, 3 ML/SEC
     Route: 042
     Dates: start: 20130514, end: 20130514
  2. BUSCOPAN [Concomitant]
     Dosage: 20 MG, SINGLE
     Route: 042
     Dates: start: 20130514, end: 20130514

REACTIONS (3)
  - Myalgia [Recovered/Resolved]
  - Rash generalised [Not Recovered/Not Resolved]
  - Chills [Recovered/Resolved]
